FAERS Safety Report 23788279 (Version 1)
Quarter: 2024Q2

REPORT INFORMATION
  Report Type: Spontaneous
  Country: US (occurrence: None)
  Receive Date: 20240425
  Receipt Date: 20240425
  Transmission Date: 20240716
  Serious: No
  Sender: FDA-Public Use
  Company Number: None

PATIENT
  Sex: Male

DRUGS (1)
  1. MYCOPHENOLIC ACID [Suspect]
     Active Substance: MYCOPHENOLIC ACID
     Indication: Renal transplant
     Dosage: OTHER QUANTITY : SEE THE ^ADDITIONA;?OTHER FREQUENCY : SEE THE ^ADDITIONA;?
     Route: 048
     Dates: start: 20210709

REACTIONS (2)
  - Surgery [None]
  - Sepsis [None]
